FAERS Safety Report 16963497 (Version 2)
Quarter: 2019Q4

REPORT INFORMATION
  Report Type: Spontaneous
  Country: BR (occurrence: BR)
  Receive Date: 20191025
  Receipt Date: 20191106
  Transmission Date: 20200122
  Serious: No
  Sender: FDA-Public Use
  Company Number: BR-BEH-2019108580

PATIENT
  Age: 70 Year
  Weight: 70 kg

DRUGS (2)
  1. ENDOBULIN [Suspect]
     Active Substance: HUMAN IMMUNOGLOBULIN G
     Indication: PERIPHERAL MOTOR NEUROPATHY
     Route: 065
  2. PRIVIGEN [Suspect]
     Active Substance: HUMAN IMMUNOGLOBULIN G
     Indication: PERIPHERAL MOTOR NEUROPATHY
     Dosage: UNK
     Route: 042
     Dates: start: 20191022, end: 20191022

REACTIONS (6)
  - No adverse event [Unknown]
  - Product use in unapproved indication [Unknown]
  - Body temperature increased [Unknown]
  - Vomiting [Unknown]
  - Hypertension [Unknown]
  - Tremor [Unknown]

NARRATIVE: CASE EVENT DATE: 20191022
